FAERS Safety Report 4493603-X (Version None)
Quarter: 2004Q4

REPORT INFORMATION
  Report Type: 
  Country: None (occurrence: None)
  Receive Date: 20041103
  Receipt Date: 20041103
  Transmission Date: 20050328
  Serious: Yes (Hospitalization)
  Sender: FDA-Public Use
  Company Number: None

PATIENT
  Age: 75 Year
  Sex: Female
  Weight: 66.2252 kg

DRUGS (1)
  1. VIOXX [Suspect]
     Indication: ARTHRALGIA
     Dosage: ONE A DAY EVERY MORNING
     Dates: start: 19990101, end: 20040930

REACTIONS (8)
  - ABDOMINAL PAIN UPPER [None]
  - DIARRHOEA [None]
  - DRUG WITHDRAWAL SYNDROME [None]
  - DYSPNOEA [None]
  - HYPOAESTHESIA [None]
  - PAIN [None]
  - VOMITING [None]
  - WEIGHT DECREASED [None]
